FAERS Safety Report 7376230-6 (Version None)
Quarter: 2011Q1

REPORT INFORMATION
  Report Type: 
  Country: None (occurrence: None)
  Receive Date: 20110315
  Receipt Date: 20110301
  Transmission Date: 20110831
  Serious: Yes (Other)
  Sender: FDA-Public Use
  Company Number: B0705134A

PATIENT
  Age: 49 Year
  Sex: Female

DRUGS (1)
  1. VALACYCLOVIR [Suspect]
     Indication: HERPES ZOSTER
     Dosage: 1000 MG, THREE TIMES PER DAY

REACTIONS (13)
  - DISORIENTATION [None]
  - HEART RATE INCREASED [None]
  - DELIRIUM [None]
  - CONFUSIONAL STATE [None]
  - BLOOD PRESSURE INCREASED [None]
  - DRUG LEVEL ABOVE THERAPEUTIC [None]
  - NEUROTOXICITY [None]
  - AGITATION [None]
  - BLOOD CREATININE INCREASED [None]
  - HALLUCINATION [None]
  - INCOHERENT [None]
  - BLOOD UREA INCREASED [None]
  - HAEMODIALYSIS [None]
